FAERS Safety Report 24877037 (Version 1)
Quarter: 2025Q1

REPORT INFORMATION
  Report Type: Spontaneous
  Country: RU (occurrence: RU)
  Receive Date: 20250123
  Receipt Date: 20250123
  Transmission Date: 20250409
  Serious: Yes (Life-Threatening)
  Sender: JOHNSON AND JOHNSON
  Company Number: RU-JNJFOC-20250161203

PATIENT
  Age: 64 Year
  Sex: Female
  Weight: 77 kg

DRUGS (1)
  1. DARZALEX [Suspect]
     Active Substance: DARATUMUMAB
     Indication: Plasma cell myeloma
     Route: 042
     Dates: start: 20241114, end: 20241114

REACTIONS (2)
  - Bronchospasm [Recovering/Resolving]
  - Hypotension [Recovering/Resolving]

NARRATIVE: CASE EVENT DATE: 20241114
